FAERS Safety Report 24162486 (Version 1)
Quarter: 2024Q3

REPORT INFORMATION
  Report Type: Spontaneous
  Country: US (occurrence: US)
  Receive Date: 20240801
  Receipt Date: 20240801
  Transmission Date: 20241017
  Serious: Yes (Hospitalization)
  Sender: Unknown Manufacturer
  Company Number: US-BLUEPRINT MEDICINES CORPORATION-2024BUS004445

PATIENT

DRUGS (1)
  1. GAVRETO [Suspect]
     Active Substance: PRALSETINIB
     Indication: Lung neoplasm malignant
     Dosage: UNK
     Route: 065
     Dates: start: 20220404

REACTIONS (1)
  - Adverse event [Unknown]
